FAERS Safety Report 13636443 (Version 1)
Quarter: 2017Q2

REPORT INFORMATION
  Report Type: Spontaneous
  Country: US (occurrence: US)
  Receive Date: 20170609
  Receipt Date: 20170609
  Transmission Date: 20170830
  Serious: Yes (Other)
  Sender: FDA-Public Use
  Company Number: US-BRISTOL-MYERS SQUIBB COMPANY-BMS-2017-049169

PATIENT
  Sex: Male
  Weight: 103.86 kg

DRUGS (1)
  1. COUMADINE [Suspect]
     Active Substance: WARFARIN SODIUM
     Indication: CARDIAC DISORDER
     Dosage: 3 MG, QD
     Route: 065

REACTIONS (4)
  - International normalised ratio fluctuation [Unknown]
  - Cardiac pacemaker insertion [Unknown]
  - Increased tendency to bruise [Unknown]
  - Weight decreased [Unknown]
